FAERS Safety Report 7768862-8 (Version None)
Quarter: 2011Q3

REPORT INFORMATION
  Report Type: 
  Country: None (occurrence: None)
  Receive Date: 20110922
  Receipt Date: 20101115
  Transmission Date: 20111222
  Serious: No
  Sender: FDA-Public Use
  Company Number: US-ASTRAZENECA-2010SE54573

PATIENT
  Sex: Female

DRUGS (1)
  1. SEROQUEL [Suspect]
     Indication: BIPOLAR DISORDER
     Dosage: 300 MG TWO TIMES A DAY
     Route: 048

REACTIONS (3)
  - IMPAIRED WORK ABILITY [None]
  - MENTAL DISABILITY [None]
  - MALAISE [None]
